FAERS Safety Report 16969840 (Version 1)
Quarter: 2019Q4

REPORT INFORMATION
  Report Type: Spontaneous
  Country: DK (occurrence: DK)
  Receive Date: 20191029
  Receipt Date: 20191029
  Transmission Date: 20200122
  Serious: Yes (Death)
  Sender: FDA-Public Use
  Company Number: DK-ROCHE-2457571

PATIENT
  Age: 90 Year
  Sex: Male

DRUGS (6)
  1. ANCOZAN [Concomitant]
     Active Substance: LOSARTAN POTASSIUM
  2. ACTILYSE [Suspect]
     Active Substance: ALTEPLASE
     Indication: ISCHAEMIC STROKE
     Route: 042
     Dates: start: 20191010
  3. AMLODIPINE [Concomitant]
     Active Substance: AMLODIPINE BESYLATE
  4. MAGNYL [ACETYLSALICYLIC ACID] [Concomitant]
     Active Substance: ASPIRIN
  5. PANODIL [Concomitant]
     Active Substance: ACETAMINOPHEN
  6. FURIX [FUROSEMIDE] [Concomitant]
     Active Substance: FUROSEMIDE
     Dosage: STRENGTH 245
     Route: 065
     Dates: start: 20190930

REACTIONS (5)
  - Brain compression [Fatal]
  - Subarachnoid haemorrhage [Fatal]
  - Subdural haematoma [Fatal]
  - Cerebral haemorrhage [Fatal]
  - Somnolence [Unknown]

NARRATIVE: CASE EVENT DATE: 20191010
